FAERS Safety Report 19610838 (Version 1)
Quarter: 2021Q3

REPORT INFORMATION
  Report Type: Spontaneous
  Country: FR (occurrence: FR)
  Receive Date: 20210726
  Receipt Date: 20210726
  Transmission Date: 20211014
  Serious: Yes (Other)
  Sender: FDA-Public Use
  Company Number: FR-009507513-2107FRA006004

PATIENT
  Age: 62 Year
  Sex: Female
  Weight: 62 kg

DRUGS (3)
  1. ZEPATIER [Suspect]
     Active Substance: ELBASVIR\GRAZOPREVIR
     Indication: HEPATITIS C
     Dosage: 1 DOSAGE FORM, 50 MG/100 MG COATED TABLET VIA BUCCAL (IN THE MOUTH) ROUTE
     Route: 048
     Dates: start: 20171221, end: 20180214
  2. SOVALDI [Suspect]
     Active Substance: SOFOSBUVIR
     Indication: HEPATITIS C
     Dosage: 1 DOSAGE FORM,VIA BUCCAL (IN THE MOUTH) ROUTE
     Route: 048
     Dates: start: 20180914, end: 20181207
  3. MAVIRET [Suspect]
     Active Substance: GLECAPREVIR\PIBRENTASVIR
     Indication: HEPATITIS C
     Dosage: 3 DOSAGE FORM,100 MG/40 MG VIA BUCCAL (IN THE MOUTH) ROUTE
     Route: 048
     Dates: start: 20180914, end: 20181207

REACTIONS (1)
  - Breast cancer [Not Recovered/Not Resolved]

NARRATIVE: CASE EVENT DATE: 20210210
